FAERS Safety Report 11574257 (Version 4)
Quarter: 2018Q4

REPORT INFORMATION
  Report Type: Spontaneous
  Country: US (occurrence: US)
  Receive Date: 20150930
  Receipt Date: 20181031
  Transmission Date: 20190204
  Serious: Yes (Hospitalization, Disabling, Other)
  Sender: FDA-Public Use
  Company Number: US-CIPLA LTD.-2015US07528

PATIENT

DRUGS (20)
  1. LAMOTRIGINE. [Suspect]
     Active Substance: LAMOTRIGINE
     Dosage: UNK, DOSE INCREASED
     Route: 065
  2. PREDNISOLONE. [Concomitant]
     Active Substance: PREDNISOLONE
     Dosage: UNK, 2-4 TIMES A DAY
     Route: 061
  3. BRIMONIDINE TARTRATE W/TIMOLOL [Concomitant]
     Dosage: UNK, BID
     Route: 047
  4. INFLIXIMAB [Concomitant]
     Active Substance: INFLIXIMAB
     Dosage: UNK, IN 3RD WEEK
  5. METHOTREXATE. [Concomitant]
     Active Substance: METHOTREXATE
     Indication: SCLERITIS
     Dosage: UNK
     Route: 065
  6. INFLIXIMAB [Concomitant]
     Active Substance: INFLIXIMAB
     Indication: DEAFNESS NEUROSENSORY
     Dosage: 900 MG, UNK (INFUSION)
  7. LAMOTRIGINE. [Suspect]
     Active Substance: LAMOTRIGINE
     Indication: FOCAL DYSCOGNITIVE SEIZURES
     Dosage: UNK
     Route: 065
  8. PREDNISOLONE. [Concomitant]
     Active Substance: PREDNISOLONE
     Indication: IRIDOCYCLITIS
     Dosage: UNK
     Route: 061
  9. DORZOLAMIDE [Concomitant]
     Active Substance: DORZOLAMIDE
     Indication: OCULAR HYPERTENSION
     Dosage: UNK
     Route: 047
  10. DECADRON [Concomitant]
     Active Substance: DEXAMETHASONE
     Indication: DEAFNESS NEUROSENSORY
     Dosage: UNK (INJECTION)
     Route: 065
  11. INFLIXIMAB [Concomitant]
     Active Substance: INFLIXIMAB
     Dosage: UNK, IN 5TH WEEK
  12. ATIVAN [Concomitant]
     Active Substance: LORAZEPAM
     Indication: SEIZURE
     Dosage: UNK
     Route: 065
  13. PREDNISONE. [Concomitant]
     Active Substance: PREDNISONE
     Indication: TUBULOINTERSTITIAL NEPHRITIS
     Dosage: UNK
     Route: 048
  14. BRIMONIDINE TARTRATE W/TIMOLOL [Concomitant]
     Indication: OCULAR HYPERTENSION
     Dosage: UNK
     Route: 047
  15. DIFLUPREDNATE [Concomitant]
     Active Substance: DIFLUPREDNATE
     Indication: IRIDOCYCLITIS
     Dosage: UNK, 2-4 TIMES/DAY
     Route: 061
  16. DORZOLAMIDE [Concomitant]
     Active Substance: DORZOLAMIDE
     Dosage: UNK, BID
     Route: 047
  17. CYCLOPENTOLATE. [Concomitant]
     Active Substance: CYCLOPENTOLATE
     Indication: IRIDOCYCLITIS
     Dosage: UNK
     Route: 065
  18. KENALOG [Concomitant]
     Active Substance: TRIAMCINOLONE ACETONIDE
     Indication: SCLERITIS
     Dosage: UNK (INJECTION)
     Route: 065
  19. PREDNISONE. [Concomitant]
     Active Substance: PREDNISONE
     Dosage: 5-10 MG DAILY
     Route: 048
  20. PREDNISOLONE. [Concomitant]
     Active Substance: PREDNISOLONE
     Dosage: UNK, QID, IN BOTH EYES
     Route: 047

REACTIONS (6)
  - Ocular hypertension [Recovered/Resolved]
  - Tubulointerstitial nephritis and uveitis syndrome [Unknown]
  - Seizure [Unknown]
  - Back pain [Unknown]
  - Treatment noncompliance [Unknown]
  - Cogan^s syndrome [Recovered/Resolved with Sequelae]
